FAERS Safety Report 9157082 (Version 1)
Quarter: 2013Q1

REPORT INFORMATION
  Report Type: Spontaneous
  Country: DE (occurrence: DE)
  Receive Date: 20130312
  Receipt Date: 20130312
  Transmission Date: 20140127
  Serious: Yes (Life-Threatening, Hospitalization)
  Sender: FDA-Public Use
  Company Number: DE-SANOFI-AVENTIS-2013SA024306

PATIENT
  Age: 52 Year
  Sex: Male
  Weight: 83 kg

DRUGS (4)
  1. LANTUS [Suspect]
     Indication: TYPE 1 DIABETES MELLITUS
     Dosage: 1.5-1.0-1.5 IU PER BREAD UNIT
     Route: 058
  2. LANTUS [Suspect]
     Indication: TYPE 1 DIABETES MELLITUS
     Route: 058
  3. APIDRA [Suspect]
     Indication: TYPE 1 DIABETES MELLITUS
     Route: 058
  4. APIDRA [Suspect]
     Indication: TYPE 1 DIABETES MELLITUS
     Route: 058

REACTIONS (4)
  - Suicide attempt [Recovered/Resolved]
  - Intentional overdose [Recovered/Resolved]
  - Blood glucose decreased [Recovered/Resolved]
  - Somnolence [Recovered/Resolved]
